FAERS Safety Report 5582816-1 (Version None)
Quarter: 2008Q1

REPORT INFORMATION
  Report Type: 
  Country: None (occurrence: None)
  Receive Date: 20080107
  Receipt Date: 20071228
  Transmission Date: 20080703
  Serious: Yes (Hospitalization)
  Sender: FDA-Public Use
  Company Number: IT-BAYER-200810017GPV

PATIENT
  Age: 90 Year
  Sex: Female

DRUGS (1)
  1. ASPIRIN [Suspect]
     Indication: DRUG USE FOR UNKNOWN INDICATION
     Dosage: AS USED: (100 MG  UNIT DOSE: 100 MG
     Route: 048
     Dates: start: 20040101, end: 20071123

REACTIONS (4)
  - ANAEMIA [None]
  - HAEMATEMESIS [None]
  - HAEMATOMA [None]
  - SYNCOPE [None]
